FAERS Safety Report 15577437 (Version 2)
Quarter: 2023Q1

REPORT INFORMATION
  Report Type: Other
  Country: CA (occurrence: None)
  Receive Date: 20181102
  Receipt Date: 20230321
  Transmission Date: 20230417
  Serious: Yes (Other)
  Sender: FDA-Public Use
  Company Number: CA-ROCHE-2207894

PATIENT
  Age: 34 Year
  Sex: Female

DRUGS (1)
  1. OCREVUS [Suspect]
     Active Substance: OCRELIZUMAB
     Indication: Relapsing-remitting multiple sclerosis
     Dosage: 300 MG AT DAY 0 AND 14, THEN 600 MG EVERY 6 MONTH
     Route: 042
     Dates: start: 20180427

REACTIONS (4)
  - Multiple sclerosis [Recovered/Resolved with Sequelae]
  - Nasopharyngitis [Recovered/Resolved with Sequelae]
  - Blister [Not Recovered/Not Resolved]
  - CD19 lymphocytes decreased [Recovered/Resolved]

NARRATIVE: CASE EVENT DATE: 20181001
